FAERS Safety Report 21949535 (Version 1)
Quarter: 2023Q1

REPORT INFORMATION
  Report Type: Spontaneous
  Country: US (occurrence: US)
  Receive Date: 20230203
  Receipt Date: 20230203
  Transmission Date: 20230418
  Serious: Yes (Death, Other)
  Sender: FDA-Public Use
  Company Number: US-drreddys-LIT/USA/23/0160643

PATIENT
  Age: 60 Year
  Sex: Male

DRUGS (16)
  1. BORTEZOMIB [Suspect]
     Active Substance: BORTEZOMIB
     Indication: Hyperammonaemic encephalopathy
     Route: 042
  2. BORTEZOMIB [Suspect]
     Active Substance: BORTEZOMIB
     Indication: Plasma cell myeloma
  3. DEXAMETHASONE [Suspect]
     Active Substance: DEXAMETHASONE
     Indication: Hyperammonaemic encephalopathy
     Route: 040
  4. DEXAMETHASONE [Suspect]
     Active Substance: DEXAMETHASONE
     Indication: Plasma cell myeloma
  5. CYCLOPHOSPHAMIDE [Suspect]
     Active Substance: CYCLOPHOSPHAMIDE
     Indication: Hyperammonaemic encephalopathy
     Route: 042
  6. CYCLOPHOSPHAMIDE [Suspect]
     Active Substance: CYCLOPHOSPHAMIDE
     Indication: Plasma cell myeloma
     Route: 042
  7. ETOPOSIDE [Suspect]
     Active Substance: ETOPOSIDE
     Indication: Hyperammonaemic encephalopathy
     Dosage: ON DAYS 1?4 (DCEP) WAS ADMINISTERED FOR ONE CYCLE
     Route: 042
  8. ETOPOSIDE [Suspect]
     Active Substance: ETOPOSIDE
     Indication: Plasma cell myeloma
  9. CISPLATIN [Suspect]
     Active Substance: CISPLATIN
     Indication: Hyperammonaemic encephalopathy
     Dosage: ON DAYS 1?4 (DCEP) WAS ADMINISTERED FOR ONE CYCLE
     Route: 042
  10. CISPLATIN [Suspect]
     Active Substance: CISPLATIN
     Indication: Plasma cell myeloma
  11. DARATUMUMAB [Suspect]
     Active Substance: DARATUMUMAB
     Indication: Hyperammonaemic encephalopathy
     Dosage: ON CYCLE 1DAY 8
     Route: 058
  12. DARATUMUMAB [Suspect]
     Active Substance: DARATUMUMAB
     Indication: Plasma cell myeloma
  13. RIFAXIMIN [Concomitant]
     Active Substance: RIFAXIMIN
     Indication: Hyperammonaemic encephalopathy
  14. RIFAXIMIN [Concomitant]
     Active Substance: RIFAXIMIN
     Indication: Plasma cell myeloma
  15. LACTULOSE [Concomitant]
     Active Substance: LACTULOSE
     Indication: Hyperammonaemic encephalopathy
  16. LACTULOSE [Concomitant]
     Active Substance: LACTULOSE
     Indication: Plasma cell myeloma

REACTIONS (3)
  - Hyperammonaemic encephalopathy [Fatal]
  - Plasma cell myeloma [Unknown]
  - Drug ineffective for unapproved indication [Unknown]
